FAERS Safety Report 21003343 (Version 1)
Quarter: 2022Q2

REPORT INFORMATION
  Report Type: Spontaneous
  Country: US (occurrence: US)
  Receive Date: 20220624
  Receipt Date: 20220624
  Transmission Date: 20220721
  Serious: No
  Sender: FDA-Public Use
  Company Number: US-SUNOVION-2022SUN001847

PATIENT
  Age: 11 Year
  Sex: Female

DRUGS (12)
  1. LATUDA [Suspect]
     Active Substance: LURASIDONE HYDROCHLORIDE
     Indication: Disruptive mood dysregulation disorder
     Dosage: 10 MG
     Route: 048
  2. LATUDA [Suspect]
     Active Substance: LURASIDONE HYDROCHLORIDE
     Dosage: 20 MG, QD
     Route: 048
  3. LATUDA [Suspect]
     Active Substance: LURASIDONE HYDROCHLORIDE
     Dosage: 30 MG, QD
     Route: 048
  4. LATUDA [Suspect]
     Active Substance: LURASIDONE HYDROCHLORIDE
     Dosage: 15 MG (3 TIMES A WEEK)
  5. LATUDA [Suspect]
     Active Substance: LURASIDONE HYDROCHLORIDE
     Dosage: 20 MG, QD (10 MG IN MORNING AND 10 MG AT DINNERTIME)
     Route: 048
  6. LATUDA [Suspect]
     Active Substance: LURASIDONE HYDROCHLORIDE
     Dosage: 5 MG IN MORNING
     Route: 048
     Dates: start: 20220507
  7. BUSPAR [Suspect]
     Active Substance: BUSPIRONE HYDROCHLORIDE
     Dosage: 17.5 MG, QD
     Route: 065
  8. BUSPAR [Suspect]
     Active Substance: BUSPIRONE HYDROCHLORIDE
     Dosage: 15 MG, QD (5MG IN MORNING AND 10 MG IN DINNER TIME)
  9. LAMOTRIGINE [Suspect]
     Active Substance: LAMOTRIGINE
     Route: 065
  10. LEXAPRO [Suspect]
     Active Substance: ESCITALOPRAM OXALATE
     Route: 065
  11. GUANFACINE [Concomitant]
     Active Substance: GUANFACINE
     Dosage: 1 MG
  12. TOPIRAMATE [Concomitant]
     Active Substance: TOPIRAMATE
     Dosage: 50 MG, BID

REACTIONS (10)
  - Abnormal behaviour [Unknown]
  - Growth accelerated [Unknown]
  - Drug effect less than expected [Unknown]
  - Lethargy [Unknown]
  - Somnolence [Unknown]
  - Weight increased [Unknown]
  - Off label use [Unknown]
  - Prescribed underdose [Unknown]
  - Product dose omission issue [Unknown]
  - Wrong technique in product usage process [Unknown]

NARRATIVE: CASE EVENT DATE: 20220507
